FAERS Safety Report 5270494-0 (Version None)
Quarter: 2007Q1

REPORT INFORMATION
  Report Type: 
  Country: None (occurrence: None)
  Receive Date: 20070320
  Receipt Date: 20070306
  Transmission Date: 20070707
  Serious: Yes (Death, Hospitalization)
  Sender: FDA-Public Use
  Company Number: CN-MERCK-0702CHN00018

PATIENT
  Age: 82 Year
  Sex: Male

DRUGS (11)
  1. CANCIDAS [Suspect]
     Indication: FUNGAL INFECTION
     Route: 042
     Dates: start: 20070209, end: 20070209
  2. CANCIDAS [Suspect]
     Route: 042
     Dates: start: 20070210, end: 20070220
  3. CANCIDAS [Suspect]
     Route: 042
     Dates: start: 20070118, end: 20070118
  4. CANCIDAS [Suspect]
     Route: 042
     Dates: start: 20070119, end: 20070128
  5. PERDIPINE [Concomitant]
     Indication: HYPERTENSION
     Route: 042
     Dates: start: 20070131, end: 20070214
  6. [COMPOSITION UNSPECIFIED] [Concomitant]
     Indication: SYSTEMIC INFLAMMATORY RESPONSE SYNDROME
     Route: 042
     Dates: start: 20070120, end: 20070201
  7. LEVOCARNITINE [Concomitant]
     Indication: NUTRITIONAL SUPPORT
     Route: 042
     Dates: start: 20070120, end: 20070201
  8. DIAMMONIUM GLYCYRRHIZINATE [Concomitant]
     Indication: HEPATIC FUNCTION ABNORMAL
     Route: 042
     Dates: start: 20070206, end: 20070201
  9. HEPARIN [Suspect]
     Indication: ANTICOAGULANT THERAPY
     Route: 065
     Dates: start: 20061201, end: 20070101
  10. TAZOCIN [Concomitant]
     Indication: LUNG INFECTION
     Route: 065
     Dates: start: 20070125, end: 20070222
  11. ELANTAN [Concomitant]
     Indication: HYPERTENSION
     Route: 042
     Dates: start: 20070131, end: 20070217

REACTIONS (3)
  - ACTIVATED PARTIAL THROMBOPLASTIN TIME PROLONGED [None]
  - GASTROINTESTINAL HAEMORRHAGE [None]
  - INFECTION [None]
